FAERS Safety Report 20258500 (Version 2)
Quarter: 2022Q1

REPORT INFORMATION
  Report Type: Spontaneous
  Country: US (occurrence: US)
  Receive Date: 20211230
  Receipt Date: 20220112
  Transmission Date: 20220423
  Serious: Yes (Hospitalization)
  Sender: FDA-Public Use
  Company Number: US-TEVA-2021-US-1993073

PATIENT
  Age: 94 Year
  Sex: Male

DRUGS (1)
  1. CLOBETASOL [Suspect]
     Active Substance: CLOBETASOL
     Indication: Pemphigoid
     Route: 061

REACTIONS (2)
  - Cutaneous mucormycosis [Recovered/Resolved]
  - Injection site infection [Recovered/Resolved]
